FAERS Safety Report 5639604-7 (Version None)
Quarter: 2008Q1

REPORT INFORMATION
  Report Type: 
  Country: None (occurrence: None)
  Receive Date: 20080222
  Receipt Date: 20080206
  Transmission Date: 20080703
  Serious: Yes (Death, Hospitalization, Other)
  Sender: FDA-Public Use
  Company Number: US-1164973

PATIENT
  Age: 71 Year
  Sex: Female

DRUGS (1)
  1. SYSTANE EYE DROPS [Suspect]
     Indication: DRY EYE
     Dosage: (OPHTHALMIC)
     Dates: start: 20070701

REACTIONS (6)
  - CELLULITIS ORBITAL [None]
  - DACRYOCANALICULITIS [None]
  - EYE ABSCESS [None]
  - EYE INFECTION [None]
  - STENOTROPHOMONAS INFECTION [None]
  - THERAPEUTIC PRODUCT CONTAMINATION [None]
